FAERS Safety Report 6756798-0 (Version None)
Quarter: 2010Q2

REPORT INFORMATION
  Report Type: 
  Country: None (occurrence: None)
  Receive Date: 20100604
  Receipt Date: 20100531
  Transmission Date: 20101027
  Serious: Yes (Death, Hospitalization, Other)
  Sender: FDA-Public Use
  Company Number: MX-ELI_LILLY_AND_COMPANY-MX201006000563

PATIENT
  Age: 63 Year
  Sex: Female
  Weight: 80 kg

DRUGS (1)
  1. XIGRIS [Suspect]
     Indication: ABDOMINAL SEPSIS
     Dosage: 25 MG, OTHER (EVERY 12 HOURS)
     Route: 042

REACTIONS (5)
  - BLOOD DISORDER [None]
  - DEATH [None]
  - HAEMODYNAMIC INSTABILITY [None]
  - MULTI-ORGAN FAILURE [None]
  - RESPIRATORY FAILURE [None]
